FAERS Safety Report 16721769 (Version 2)
Quarter: 2019Q4

REPORT INFORMATION
  Report Type: Spontaneous
  Country: JP (occurrence: JP)
  Receive Date: 20190820
  Receipt Date: 20191209
  Transmission Date: 20200122
  Serious: Yes (Other)
  Sender: FDA-Public Use
  Company Number: PHHY2019JP190080

PATIENT
  Age: 28 Year
  Sex: Female

DRUGS (20)
  1. PREDNISONE. [Suspect]
     Active Substance: PREDNISONE
     Dosage: UNK, (SIX COURSES)
     Route: 065
  2. RITUXIMAB. [Suspect]
     Active Substance: RITUXIMAB
     Indication: SUPERIOR VENA CAVA SYNDROME
     Dosage: UNK, (TWO COURSES), DOSE ADJUSTED
     Route: 065
  3. ETOPOSIDE. [Suspect]
     Active Substance: ETOPOSIDE
     Indication: PRIMARY MEDIASTINAL LARGE B-CELL LYMPHOMA
     Dosage: UNK, (TWO COURSES), DOSE ADJUSTED
     Route: 065
  4. DOXORUBICIN [Suspect]
     Active Substance: DOXORUBICIN
     Indication: PRIMARY MEDIASTINAL LARGE B-CELL LYMPHOMA
     Dosage: UNK, (THREE COURSES), ON DAY 0 AT 16 WEEKS OF PREGNANCY
     Route: 065
  5. VINCRISTINE [Suspect]
     Active Substance: VINCRISTINE
     Indication: PRIMARY MEDIASTINAL LARGE B-CELL LYMPHOMA
     Dosage: UNK, (THREE COURSES),ON DAY 0 AT 16 WEEKS OF PREGNANCY
     Route: 065
  6. RITUXIMAB. [Suspect]
     Active Substance: RITUXIMAB
     Indication: PRIMARY MEDIASTINAL LARGE B-CELL LYMPHOMA
     Dosage: UNK, (THREE COURSES), DAY 0 AT 25 WEEKS
     Route: 065
  7. CYCLOPHOSPHAMIDE. [Suspect]
     Active Substance: CYCLOPHOSPHAMIDE
     Indication: PRIMARY MEDIASTINAL LARGE B-CELL LYMPHOMA
     Dosage: UNK, (THREE COURSES), ON DAY 0 AT 16 WEEKS OF PREGNANCY
     Route: 065
  8. VINCRISTINE [Suspect]
     Active Substance: VINCRISTINE
     Indication: SUPERIOR VENA CAVA SYNDROME
     Dosage: UNK, (THREE COURSES)
     Route: 065
  9. VINCRISTINE [Suspect]
     Active Substance: VINCRISTINE
     Dosage: UNK, (SIX COURSES)
     Route: 065
  10. PREDNISONE. [Suspect]
     Active Substance: PREDNISONE
     Indication: SUPERIOR VENA CAVA SYNDROME
     Dosage: UNK, (THREE COURSES)
     Route: 065
  11. PREDNISONE. [Suspect]
     Active Substance: PREDNISONE
     Dosage: UNK, (TWO COURSES), DOSE ADJUSTED
     Route: 065
  12. DOXORUBICIN [Suspect]
     Active Substance: DOXORUBICIN
     Indication: SUPERIOR VENA CAVA SYNDROME
     Dosage: UNK, (THREE COURSES)
     Route: 065
  13. DOXORUBICIN [Suspect]
     Active Substance: DOXORUBICIN
     Dosage: UNK, (SIX COURSES)
     Route: 065
  14. CYCLOPHOSPHAMIDE. [Suspect]
     Active Substance: CYCLOPHOSPHAMIDE
     Indication: SUPERIOR VENA CAVA SYNDROME
     Dosage: UNK, (THREE COURSES)
     Route: 065
  15. PREDNISONE. [Suspect]
     Active Substance: PREDNISONE
     Indication: PRIMARY MEDIASTINAL LARGE B-CELL LYMPHOMA
     Dosage: UNK, (THREE COURSES), ON DAY 0 AT 16 WEEKS OF PREGNANCY
     Route: 065
  16. CYCLOPHOSPHAMIDE. [Suspect]
     Active Substance: CYCLOPHOSPHAMIDE
     Dosage: UNK, (SIX COURSES)
     Route: 065
  17. ETOPOSIDE. [Suspect]
     Active Substance: ETOPOSIDE
     Indication: SUPERIOR VENA CAVA SYNDROME
  18. DOXORUBICIN [Suspect]
     Active Substance: DOXORUBICIN
     Dosage: UNK, (TWO COURSES), DOSE ADJUSTED
     Route: 065
  19. CYCLOPHOSPHAMIDE. [Suspect]
     Active Substance: CYCLOPHOSPHAMIDE
     Dosage: UNK, (TWO COURSES), DOSE ADJUSTED
     Route: 065
  20. VINCRISTINE [Suspect]
     Active Substance: VINCRISTINE
     Dosage: UNK, (TWO COURSES), DOSE ADJUSTED
     Route: 065

REACTIONS (3)
  - Neutropenia [Unknown]
  - Therapy partial responder [Unknown]
  - Maternal exposure during pregnancy [Unknown]
